FAERS Safety Report 6638057-X (Version None)
Quarter: 2010Q1

REPORT INFORMATION
  Report Type: 
  Country: None (occurrence: None)
  Receive Date: 20100312
  Receipt Date: 20100305
  Transmission Date: 20100710
  Serious: Yes (Death, Hospitalization)
  Sender: FDA-Public Use
  Company Number: 93624 -2

PATIENT
  Age: 60 Year
  Sex: Male
  Weight: 99 kg

DRUGS (1)
  1. ETOPOSIDE [Suspect]
     Indication: NON-SMALL CELL LUNG CANCER STAGE III
     Dosage: 113MG IV
     Route: 042
     Dates: start: 20090824, end: 20090925

REACTIONS (8)
  - ANAEMIA [None]
  - DIZZINESS [None]
  - DYSPNOEA [None]
  - FATIGUE [None]
  - NEUTROPENIA [None]
  - ORTHOSTATIC HYPOTENSION [None]
  - PULMONARY RADIATION INJURY [None]
  - RESPIRATORY FAILURE [None]
